FAERS Safety Report 5426143-1 (Version None)
Quarter: 2007Q3

REPORT INFORMATION
  Report Type: 
  Country: None (occurrence: None)
  Receive Date: 20070827
  Receipt Date: 20070817
  Transmission Date: 20080115
  Serious: Yes (Death, Other)
  Sender: FDA-Public Use
  Company Number: CA-ELI_LILLY_AND_COMPANY-CA200708003729

PATIENT
  Age: 52 Year
  Sex: Male

DRUGS (1)
  1. ZYPREXA ZYDIS [Suspect]
     Dosage: 15 MG, 3/D
     Route: 048

REACTIONS (3)
  - DEATH [None]
  - HEAD INJURY [None]
  - OVERDOSE [None]
